FAERS Safety Report 16541509 (Version 1)
Quarter: 2019Q3

REPORT INFORMATION
  Report Type: Spontaneous
  Country: US (occurrence: US)
  Receive Date: 20190708
  Receipt Date: 20190708
  Transmission Date: 20191004
  Serious: No
  Sender: FDA-Public Use
  Company Number: US-GLAXOSMITHKLINE-US2019120167

PATIENT
  Age: 71 Year
  Sex: Female

DRUGS (2)
  1. ALLI [Suspect]
     Active Substance: ORLISTAT
     Dosage: 3 DF, QD
     Dates: start: 20190605, end: 20190630
  2. ALLI [Suspect]
     Active Substance: ORLISTAT
     Indication: WEIGHT CONTROL
     Dosage: 2 DF, QD
     Dates: start: 20190605, end: 20190630

REACTIONS (1)
  - Drug ineffective [Unknown]
